FAERS Safety Report 21248508 (Version 1)
Quarter: 2022Q3

REPORT INFORMATION
  Report Type: Report from Study
  Country: AU (occurrence: None)
  Receive Date: 20220824
  Receipt Date: 20220824
  Transmission Date: 20221026
  Serious: Yes (Hospitalization)
  Sender: FDA-Public Use
  Company Number: AU-Merck Healthcare KGaA-9344647

PATIENT
  Sex: Female

DRUGS (2)
  1. MAVENCLAD [Suspect]
     Active Substance: CLADRIBINE
     Indication: Multiple sclerosis
     Dosage: FIRST YEAR THERAPY.
     Dates: start: 20190318
  2. MAVENCLAD [Suspect]
     Active Substance: CLADRIBINE
     Dosage: SECOND YEAR FIRST MONTH THERAPY: TWO DOSAGE FORMS ON DAYS 1 AND 2, ONE DOSAGE FORM ON DAYS 3 TO 5
     Dates: start: 20201218, end: 20201222

REACTIONS (2)
  - Pulmonary oedema [Unknown]
  - Dysphagia [Unknown]
